FAERS Safety Report 6109631-4 (Version None)
Quarter: 2009Q1

REPORT INFORMATION
  Report Type: 
  Country: None (occurrence: None)
  Receive Date: 20090310
  Receipt Date: 20080425
  Transmission Date: 20090719
  Serious: No
  Sender: FDA-Public Use
  Company Number: A0697221A

PATIENT
  Age: 68 Year
  Sex: Female

DRUGS (2)
  1. NICORETTE [Suspect]
     Dates: start: 20071126, end: 20071126
  2. NICOTINE PATCHES [Suspect]
     Indication: SMOKING CESSATION THERAPY
     Route: 062
     Dates: start: 20080101

REACTIONS (2)
  - DRUG INEFFECTIVE [None]
  - ORAL DISCOMFORT [None]
